FAERS Safety Report 23755686 (Version 2)
Quarter: 2024Q2

REPORT INFORMATION
  Report Type: Spontaneous
  Country: JP (occurrence: JP)
  Receive Date: 20240418
  Receipt Date: 20240517
  Transmission Date: 20240716
  Serious: Yes (Death, Hospitalization)
  Sender: FDA-Public Use
  Company Number: JP-MYLANLABS-2024M1032481

PATIENT
  Age: 74 Year
  Sex: Male
  Weight: 60 kg

DRUGS (20)
  1. CARBOPLATIN [Suspect]
     Active Substance: CARBOPLATIN
     Indication: Lung adenocarcinoma
     Dosage: 100 MILLIGRAM
     Route: 042
     Dates: start: 2023, end: 20231117
  2. CARBOPLATIN [Suspect]
     Active Substance: CARBOPLATIN
     Indication: Lung adenocarcinoma
     Dosage: 300 MILLIGRAM
     Route: 042
     Dates: start: 20230823, end: 20231117
  3. TECENTRIQ [Suspect]
     Active Substance: ATEZOLIZUMAB
     Indication: Lung adenocarcinoma
     Dosage: 1200 MILLIGRAM
     Route: 042
     Dates: start: 20230823, end: 20231117
  4. PACLITAXEL [Suspect]
     Active Substance: PACLITAXEL
     Indication: Lung adenocarcinoma
     Dosage: 210 MILLIGRAM
     Route: 042
     Dates: start: 20230823, end: 20231117
  5. AVASTIN [Suspect]
     Active Substance: BEVACIZUMAB
     Indication: Lung adenocarcinoma
     Dosage: 400 MILLIGRAM
     Route: 042
     Dates: start: 20231013, end: 20231013
  6. AVASTIN [Suspect]
     Active Substance: BEVACIZUMAB
     Dosage: 100 MILLIGRAM
     Route: 042
     Dates: start: 20231013, end: 20231013
  7. BIO-THREE [Concomitant]
     Active Substance: HERBALS
     Indication: Product used for unknown indication
     Dosage: 2 DOSAGE FORM, TID, AFTER EACH MEAL
     Route: 048
     Dates: start: 20230927, end: 20231219
  8. ZOLPIDEM TARTRATE [Concomitant]
     Active Substance: ZOLPIDEM TARTRATE
     Indication: Product used for unknown indication
     Dosage: 5 MILLIGRAM, QD, BEFORE BEDTIME
     Route: 048
     Dates: start: 20230728, end: 20231220
  9. BELSOMRA [Concomitant]
     Active Substance: SUVOREXANT
     Indication: Product used for unknown indication
     Dosage: 15 MILLIGRAM, QD, BEFORE BEDTIME
     Route: 048
     Dates: start: 20230728, end: 20240209
  10. CALONAL [Concomitant]
     Active Substance: ACETAMINOPHEN
     Indication: Product used for unknown indication
     Dosage: 400 MILLIGRAM, QID, AFTER EVERY MEAL AND BEFORE BEDTIME
     Route: 048
     Dates: start: 20230817, end: 20231217
  11. VONOPRAZAN FUMARATE [Concomitant]
     Active Substance: VONOPRAZAN FUMARATE
     Indication: Product used for unknown indication
     Dosage: 10 MILLIGRAM, QD, AFTER BREAKFAST
     Route: 048
     Dates: start: 20230719, end: 20240209
  12. SYMPROIC [Concomitant]
     Active Substance: NALDEMEDINE
     Indication: Product used for unknown indication
     Dosage: 0.2 MILLIGRAM, QD, AFTER BREAKFAST
     Route: 048
     Dates: start: 20230718, end: 20240209
  13. CALCIUM CARBONATE\CHOLECALCIFEROL\MAGNESIUM CARBONATE [Concomitant]
     Active Substance: CALCIUM CARBONATE\CHOLECALCIFEROL\MAGNESIUM CARBONATE
     Indication: Product used for unknown indication
     Dosage: 1 DOSAGE FORM, QD, AFTER BREAKFAST
     Route: 048
     Dates: start: 20230817, end: 20240209
  14. CALCIUM POLYSTYRENE SULFONATE [Concomitant]
     Active Substance: CALCIUM POLYSTYRENE SULFONATE
     Indication: Product used for unknown indication
     Dosage: 5 GRAM, BID, AFTER BREAKFAST AND DINNER
     Route: 048
     Dates: start: 20230831, end: 20240209
  15. MAGNESIUM OXIDE [Concomitant]
     Active Substance: MAGNESIUM OXIDE
     Indication: Product used for unknown indication
     Dosage: 660 MILLIGRAM, TID, AFTER EACH MEAL
     Route: 048
     Dates: start: 20231001, end: 20240209
  16. HYDROMORPHONE HYDROCHLORIDE [Concomitant]
     Active Substance: HYDROMORPHONE HYDROCHLORIDE
     Indication: Product used for unknown indication
     Dosage: 1 DOSAGE FORM, QD, AFTER BREAKFAST
     Route: 048
     Dates: start: 20230817, end: 20240129
  17. HYDROMORPHONE HYDROCHLORIDE [Concomitant]
     Active Substance: HYDROMORPHONE HYDROCHLORIDE
     Indication: Product used for unknown indication
     Dosage: 1 MILLIGRAM, PRN, DURING PAIN
     Route: 048
     Dates: start: 20230719, end: 20240131
  18. HYDROMORPHONE HYDROCHLORIDE [Concomitant]
     Active Substance: HYDROMORPHONE HYDROCHLORIDE
     Dosage: 2 MILLIGRAM, PRN
     Route: 048
     Dates: start: 20230817, end: 20240131
  19. SILVER SULFADIAZINE [Concomitant]
     Active Substance: SILVER SULFADIAZINE
     Indication: Product used for unknown indication
     Dosage: UNK, APPLY TO AFFECTED AREA ONCE A DAY
     Route: 065
     Dates: start: 20231108, end: 20231218
  20. DENOSUMAB [Concomitant]
     Active Substance: DENOSUMAB
     Indication: Product used for unknown indication
     Dosage: 120MG/DAY X 1 TIME FOR 4 WEEKS
     Route: 065
     Dates: start: 20230817, end: 20240122

REACTIONS (2)
  - Cholangitis [Fatal]
  - Liver abscess [Fatal]

NARRATIVE: CASE EVENT DATE: 20231208
